FAERS Safety Report 18808726 (Version 1)
Quarter: 2021Q1

REPORT INFORMATION
  Report Type: Spontaneous
  Country: US (occurrence: US)
  Receive Date: 20210129
  Receipt Date: 20210129
  Transmission Date: 20210419
  Serious: Yes (Other)
  Sender: FDA-Public Use
  Company Number: None

PATIENT
  Age: 16 Year
  Sex: Female
  Weight: 56.25 kg

DRUGS (3)
  1. KEPPRA [Concomitant]
     Active Substance: LEVETIRACETAM
  2. DOXYCYCLINE. [Suspect]
     Active Substance: DOXYCYCLINE
     Indication: ACNE
     Dates: start: 20190302, end: 20190302
  3. CEFADROXIL. [Suspect]
     Active Substance: CEFADROXIL
     Indication: ACNE
     Route: 048
     Dates: start: 20201215, end: 20210101

REACTIONS (7)
  - Vomiting [None]
  - Seizure [None]
  - Fatigue [None]
  - Dyspepsia [None]
  - Epigastric discomfort [None]
  - Regurgitation [None]
  - Muscle strain [None]

NARRATIVE: CASE EVENT DATE: 20210101
